FAERS Safety Report 25881997 (Version 1)
Quarter: 2025Q4

REPORT INFORMATION
  Report Type: Spontaneous
  Country: TW (occurrence: TW)
  Receive Date: 20251005
  Receipt Date: 20251005
  Transmission Date: 20260119
  Serious: Yes (Hospitalization)
  Sender: BAXTER
  Company Number: TW-BAXTER-2025BAX021986

PATIENT
  Age: 74 Year
  Sex: Female
  Weight: 45.25 kg

DRUGS (13)
  1. IFOSFAMIDE [Suspect]
     Active Substance: IFOSFAMIDE
     Indication: Rhabdomyosarcoma
     Dosage: UNK
     Route: 065
     Dates: start: 20250711
  2. IFOSFAMIDE [Suspect]
     Active Substance: IFOSFAMIDE
     Dosage: 2000 MG, QD (SECOND CYCLE OF CHEMOTHERAPY)
     Route: 041
     Dates: start: 20250807, end: 20250808
  3. MESNA [Suspect]
     Active Substance: MESNA
     Indication: Chemotherapy side effect prophylaxis
     Dosage: 800 MG, QD
     Route: 041
     Dates: start: 20250807, end: 20250808
  4. EPIRUBICIN [Concomitant]
     Active Substance: EPIRUBICIN
     Indication: Chemotherapy
     Dosage: UNK
     Route: 065
     Dates: start: 20250711
  5. EPIRUBICIN [Concomitant]
     Active Substance: EPIRUBICIN
     Dosage: UNK
     Route: 065
     Dates: start: 20250811
  6. ZYPREXA ZYDIS [Concomitant]
     Active Substance: OLANZAPINE
     Indication: Chemotherapy side effect prophylaxis
     Dosage: 1 TAB, QD
     Route: 048
     Dates: start: 20250807, end: 20250808
  7. Megest [Concomitant]
     Indication: Cachexia
     Dosage: 4 ML, QD
     Route: 048
     Dates: start: 20250807, end: 20250808
  8. Rasitol [Concomitant]
     Indication: Chemotherapy side effect prophylaxis
     Dosage: 20 MG, QD
     Route: 042
     Dates: start: 20250807, end: 20250808
  9. ALOXI [Concomitant]
     Active Substance: PALONOSETRON HYDROCHLORIDE
     Indication: Chemotherapy side effect prophylaxis
     Dosage: 0.25 MG
     Route: 042
     Dates: start: 20250807, end: 20250807
  10. SODIUM CHLORIDE [Concomitant]
     Active Substance: SODIUM CHLORIDE
     Dosage: 1000 ML, QD
     Route: 041
     Dates: start: 20250807, end: 20250808
  11. SODIUM CHLORIDE [Concomitant]
     Active Substance: SODIUM CHLORIDE
     Dosage: (0.9%) 250 ML, ONCE WHEN NEEDED
     Route: 041
     Dates: start: 20250807, end: 20250811
  12. Rinderon [Concomitant]
     Indication: Chemotherapy side effect prophylaxis
     Dosage: 8 MG, QD
     Route: 042
     Dates: start: 20250807, end: 20250808
  13. PRIMPERAN [Concomitant]
     Active Substance: METOCLOPRAMIDE HYDROCHLORIDE
     Indication: Chemotherapy side effect prophylaxis
     Dosage: (10MG/2ML) 10 MG, BID
     Route: 042
     Dates: start: 20250807, end: 20250808

REACTIONS (3)
  - Skin toxicity [Unknown]
  - Rash pruritic [Recovered/Resolved]
  - Pyrexia [Unknown]

NARRATIVE: CASE EVENT DATE: 20250808
